FAERS Safety Report 11921951 (Version 1)
Quarter: 2016Q1

REPORT INFORMATION
  Report Type: Spontaneous
  Country: GB (occurrence: GB)
  Receive Date: 20160115
  Receipt Date: 20160115
  Transmission Date: 20160526
  Serious: Yes (Other)
  Sender: FDA-Public Use
  Company Number: GB-BAXALTA-2016BLT000034

PATIENT
  Sex: Female

DRUGS (1)
  1. SUBCUVIA [Suspect]
     Active Substance: HUMAN IMMUNOGLOBULIN G
     Indication: PRODUCT USED FOR UNKNOWN INDICATION
     Dosage: 1.6 G, UNK
     Route: 058
     Dates: start: 20121015

REACTIONS (1)
  - Pulmonary oedema [Not Recovered/Not Resolved]
